FAERS Safety Report 18038134 (Version 1)
Quarter: 2020Q3

REPORT INFORMATION
  Report Type: Spontaneous
  Country: FR (occurrence: FR)
  Receive Date: 20200718
  Receipt Date: 20200718
  Transmission Date: 20201103
  Serious: Yes (Hospitalization)
  Sender: FDA-Public Use
  Company Number: FR-AUROBINDO-AUR-APL-2020-035325

PATIENT
  Age: 42 Year
  Sex: Male

DRUGS (3)
  1. TAZOCILLINE [Suspect]
     Active Substance: PIPERACILLIN SODIUM\TAZOBACTAM SODIUM
     Indication: OSTEITIS
     Dosage: 3 DOSAGE FORM, ONCE A DAY
     Route: 042
     Dates: start: 20200518
  2. IMUREL [Concomitant]
     Active Substance: AZATHIOPRINE SODIUM
     Indication: PRODUCT USED FOR UNKNOWN INDICATION
     Dosage: UNK
     Route: 065
  3. LEVOFLOXACIN. [Suspect]
     Active Substance: LEVOFLOXACIN
     Indication: OSTEITIS
     Dosage: 2 DOSAGE FORM, ONCE A DAY
     Route: 048
     Dates: start: 20200518

REACTIONS (1)
  - Serum sickness [Recovered/Resolved]

NARRATIVE: CASE EVENT DATE: 20200612
